FAERS Safety Report 25201958 (Version 2)
Quarter: 2025Q3

REPORT INFORMATION
  Report Type: Report from Study
  Country: US (occurrence: US)
  Receive Date: 20250416
  Receipt Date: 20250806
  Transmission Date: 20251020
  Serious: No
  Sender: SUNOVION
  Company Number: US-SMPA-2025SPA003459AA

PATIENT
  Age: 62 Year
  Sex: Male

DRUGS (1)
  1. ORGOVYX [Suspect]
     Active Substance: RELUGOLIX
     Indication: Prostate cancer
     Dosage: 120 MG, QD
     Route: 048
     Dates: start: 20240508

REACTIONS (4)
  - Temperature intolerance [Unknown]
  - Hot flush [Unknown]
  - Myalgia [Unknown]
  - Incorrect dose administered [Recovered/Resolved]
